FAERS Safety Report 6243120-1 (Version None)
Quarter: 2009Q2

REPORT INFORMATION
  Report Type: 
  Country: None (occurrence: None)
  Receive Date: 20090622
  Receipt Date: 20090616
  Transmission Date: 20091009
  Serious: Yes (Disabling)
  Sender: FDA-Public Use
  Company Number: TOR 2009-0040

PATIENT
  Age: 65 Year
  Sex: Female

DRUGS (4)
  1. FARESTON [Suspect]
     Indication: BREAST CANCER
     Dosage: 120 MG ORAL
     Route: 048
     Dates: start: 20080714, end: 20081005
  2. LASIX [Concomitant]
  3. ALDACTON [Concomitant]
  4. ZOMETA [Concomitant]

REACTIONS (4)
  - ANAEMIA [None]
  - HYPERCALCAEMIA [None]
  - METASTASES TO BONE [None]
  - RENAL FAILURE [None]
